FAERS Safety Report 14758147 (Version 1)
Quarter: 2018Q2

REPORT INFORMATION
  Report Type: Spontaneous
  Country: FR (occurrence: FR)
  Receive Date: 20180413
  Receipt Date: 20180413
  Transmission Date: 20180711
  Serious: Yes (Life-Threatening)
  Sender: FDA-Public Use
  Company Number: FR-LUNDBECK-DKLU2046569

PATIENT
  Age: 38 Year
  Sex: Male

DRUGS (6)
  1. SEROPLEX FILM-COATED TABLETS [Interacting]
     Active Substance: ESCITALOPRAM OXALATE
     Indication: PRODUCT USED FOR UNKNOWN INDICATION
     Dosage: 2 DF, DAILY 1 TABLET IN THE MORNING AND IN THE EVENING FOR 1 MONTH
     Dates: start: 2017
  2. URBANYL [Suspect]
     Active Substance: CLOBAZAM
     Indication: PRODUCT USED FOR UNKNOWN INDICATION
     Dosage: 0.5 DF, 3X/DAY (HALF A TABLET IN THE MORNING, AT NOON AND IN THE EVENING FOR 1 MONTH)
     Route: 065
  3. SEROPLEX FILM-COATED TABLETS [Interacting]
     Active Substance: ESCITALOPRAM OXALATE
     Dosage: 1 DF, DAILY (PHARMACIST DISPENSED ESCITALOPRAM 20 MG AT 1 TABLET DAILY AS A MAXIMAL DAILY DOSE)
  4. LYRICA [Interacting]
     Active Substance: PREGABALIN
     Dosage: 1000 MG, DAILY FOR 5 MONTHS
     Route: 065
  5. MONOCRIXO [Interacting]
     Active Substance: TRAMADOL HYDROCHLORIDE
     Indication: PRODUCT USED FOR UNKNOWN INDICATION
     Dosage: 150 MG, 1X/DAY (ONE HARD CAPSULE AT BEDTIME FOR ONE MONTH)
     Route: 065
  6. LYRICA [Interacting]
     Active Substance: PREGABALIN
     Indication: NEURALGIA
     Dosage: 5 DF, DAILY (2 DF IN THE MORNING AND 3 DF IN THE EVENING) FOR ONE MONTH
     Route: 065

REACTIONS (4)
  - Somnolence [Unknown]
  - Drug tolerance [Unknown]
  - Drug interaction [Unknown]
  - Prescribed overdose [Unknown]

NARRATIVE: CASE EVENT DATE: 20180228
